FAERS Safety Report 7945807-9 (Version None)
Quarter: 2011Q4

REPORT INFORMATION
  Report Type: 
  Country: None (occurrence: None)
  Receive Date: 20111129
  Receipt Date: 20111114
  Transmission Date: 20120403
  Serious: Yes (Hospitalization)
  Sender: FDA-Public Use
  Company Number: ES-CELGENEUS-144-21880-11111846

PATIENT
  Sex: Female
  Weight: 60 kg

DRUGS (3)
  1. ASPIRIN [Concomitant]
     Route: 065
     Dates: start: 20100817
  2. REVLIMID [Suspect]
     Dosage: 20 MILLIGRAM
     Route: 048
     Dates: start: 20111010, end: 20111107
  3. REVLIMID [Suspect]
     Indication: DIFFUSE LARGE B-CELL LYMPHOMA
     Dosage: 20 MILLIGRAM
     Route: 048
     Dates: start: 20100817

REACTIONS (2)
  - ATAXIA [None]
  - GAIT DISTURBANCE [None]
